FAERS Safety Report 16267049 (Version 3)
Quarter: 2020Q2

REPORT INFORMATION
  Report Type: Report from Study
  Country: US (occurrence: US)
  Receive Date: 20190502
  Receipt Date: 20200602
  Transmission Date: 20200713
  Serious: Yes (Hospitalization)
  Sender: FDA-Public Use
  Company Number: US-ACTELION-A-US2019-189817

PATIENT
  Age: 42 Year
  Sex: Female

DRUGS (1)
  1. OPSUMIT [Suspect]
     Active Substance: MACITENTAN
     Indication: PULMONARY ARTERIAL HYPERTENSION
     Dosage: 10 MG, QD
     Route: 048
     Dates: start: 20181024

REACTIONS (13)
  - Dyspnoea [Unknown]
  - Oedema peripheral [Unknown]
  - Muscle strain [Unknown]
  - Palpitations [Unknown]
  - Jaundice [Unknown]
  - Hypoxia [Recovering/Resolving]
  - Troponin increased [Recovering/Resolving]
  - Blood lactic acid increased [Recovering/Resolving]
  - Musculoskeletal chest pain [Unknown]
  - Dyspnoea exertional [Unknown]
  - Oxygen saturation decreased [Recovering/Resolving]
  - Blood bilirubin increased [Unknown]
  - Aspartate aminotransferase increased [Unknown]

NARRATIVE: CASE EVENT DATE: 20190410
